FAERS Safety Report 11495097 (Version 3)
Quarter: 2016Q2

REPORT INFORMATION
  Report Type: Report from Study
  Country: US (occurrence: US)
  Receive Date: 20150911
  Receipt Date: 20160428
  Transmission Date: 20160815
  Serious: No
  Sender: FDA-Public Use
  Company Number: US-AMGEN-USASP2015090370

PATIENT
  Age: 34 Year
  Sex: Female

DRUGS (3)
  1. ENBREL [Suspect]
     Active Substance: ETANERCEPT
     Dosage: 25 MG, QWK
     Route: 065
  2. ENBREL [Suspect]
     Active Substance: ETANERCEPT
     Indication: ANKYLOSING SPONDYLITIS
     Dosage: 25 MG, ONCE EVERY OTHER WEEK
     Route: 065
     Dates: start: 2015
  3. PREDNISONE. [Concomitant]
     Active Substance: PREDNISONE
     Dosage: 20MG PILLS AS 40MG IN THE MORNING

REACTIONS (7)
  - Pharyngeal oedema [Unknown]
  - Sensation of foreign body [Not Recovered/Not Resolved]
  - Rhinorrhoea [Unknown]
  - Device issue [Unknown]
  - Malaise [Not Recovered/Not Resolved]
  - Drug effect decreased [Unknown]
  - Oropharyngeal pain [Not Recovered/Not Resolved]

NARRATIVE: CASE EVENT DATE: 2015
